FAERS Safety Report 11348415 (Version 1)
Quarter: 2015Q3

REPORT INFORMATION
  Report Type: Spontaneous
  Country: US (occurrence: US)
  Receive Date: 20150806
  Receipt Date: 20150806
  Transmission Date: 20151125
  Serious: No
  Sender: FDA-Public Use
  Company Number: US-ELI_LILLY_AND_COMPANY-US201507003898

PATIENT
  Age: 9 Year
  Sex: Male

DRUGS (2)
  1. STRATTERA [Suspect]
     Active Substance: ATOMOXETINE HYDROCHLORIDE
     Dosage: 18 MG, UNKNOWN
     Route: 065
  2. STRATTERA [Suspect]
     Active Substance: ATOMOXETINE HYDROCHLORIDE
     Indication: ATTENTION DEFICIT/HYPERACTIVITY DISORDER
     Dosage: 10 MG, UNKNOWN
     Route: 065

REACTIONS (3)
  - Irritability [Recovered/Resolved]
  - Crying [Recovered/Resolved]
  - Mood altered [Recovered/Resolved]
